FAERS Safety Report 10073618 (Version 2)
Quarter: 2014Q2

REPORT INFORMATION
  Report Type: Report from Study
  Country: BR (occurrence: BR)
  Receive Date: 20140411
  Receipt Date: 20140509
  Transmission Date: 20141212
  Serious: Yes (Other)
  Sender: FDA-Public Use
  Company Number: PHHY2014BR043584

PATIENT
  Age: 47 Year
  Sex: Female
  Weight: 73 kg

DRUGS (3)
  1. GILENYA [Suspect]
     Indication: MULTIPLE SCLEROSIS
     Dosage: 1 DF, QD
     Route: 048
     Dates: start: 2013
  2. CARBAMAZEPINE [Concomitant]
     Indication: PAIN
     Dosage: 2 DF, QD
  3. FLUOXETINE [Concomitant]
     Indication: MOOD ALTERED
     Dosage: 4 DF, QD

REACTIONS (5)
  - Feeling abnormal [Not Recovered/Not Resolved]
  - Multiple sclerosis relapse [Recovered/Resolved]
  - Vision blurred [Not Recovered/Not Resolved]
  - Skin discolouration [Unknown]
  - Headache [Recovered/Resolved]
